FAERS Safety Report 19034826 (Version 1)
Quarter: 2021Q1

REPORT INFORMATION
  Report Type: Spontaneous
  Country: US (occurrence: US)
  Receive Date: 20210320
  Receipt Date: 20210320
  Transmission Date: 20210420
  Serious: Yes (Other)
  Sender: FDA-Public Use
  Company Number: US-GLENMARK PHARMACEUTICALS-2021GMK052822

PATIENT

DRUGS (1)
  1. TRIAMCINOLONE ACETONIDE OINTMENT USP [Suspect]
     Active Substance: TRIAMCINOLONE ACETONIDE
     Indication: SYPHILIS
     Dosage: UNK
     Route: 065

REACTIONS (5)
  - Condition aggravated [Unknown]
  - Drug ineffective for unapproved indication [Unknown]
  - Skin irritation [Unknown]
  - Haemorrhage [Unknown]
  - Product substitution issue [Unknown]

NARRATIVE: CASE EVENT DATE: 20210308
